FAERS Safety Report 5700910-9 (Version None)
Quarter: 2008Q2

REPORT INFORMATION
  Report Type: 
  Country: None (occurrence: None)
  Receive Date: 20080410
  Receipt Date: 20080403
  Transmission Date: 20081010
  Serious: Yes (Other)
  Sender: FDA-Public Use
  Company Number: B0456504A

PATIENT
  Age: 52 Year
  Sex: Female

DRUGS (8)
  1. PLACEBO [Suspect]
     Indication: HIV INFECTION
     Route: 048
  2. COMBIVIR [Suspect]
     Indication: HIV INFECTION
     Dosage: 1TAB TWICE PER DAY
     Route: 048
  3. EFAVIRENZ [Suspect]
     Indication: HIV INFECTION
     Dosage: 600MG PER DAY
     Route: 048
  4. CO-TRIMOXAZOLE [Suspect]
     Indication: TUBERCULOSIS
     Route: 065
  5. RIFAMPICIN [Concomitant]
     Indication: TUBERCULOSIS
  6. ISONIAZID [Concomitant]
     Indication: TUBERCULOSIS
  7. PYRAZINAMIDE [Concomitant]
     Indication: TUBERCULOSIS
  8. ETHAMBUTOL HYDROCHLORIDE [Concomitant]
     Indication: TUBERCULOSIS

REACTIONS (2)
  - ANAEMIA [None]
  - PANCYTOPENIA [None]
